FAERS Safety Report 4727128-0 (Version None)
Quarter: 2005Q3

REPORT INFORMATION
  Report Type: 
  Country: None (occurrence: None)
  Receive Date: 20050728
  Receipt Date: 20050525
  Transmission Date: 20060218
  Serious: Yes (Hospitalization)
  Sender: FDA-Public Use
  Company Number: FR-BRISTOL-MYERS SQUIBB COMPANY-12982526

PATIENT
  Age: 47 Year
  Sex: Male
  Weight: 115 kg

DRUGS (5)
  1. ABILIFY [Suspect]
     Indication: SCHIZOPHRENIA, PARANOID TYPE
     Dosage: DOSAGE REDUCED ON 25-MAY-2005
     Route: 048
     Dates: start: 20050430
  2. PROZAC [Concomitant]
  3. LARGACTIL [Concomitant]
     Dates: start: 20050607
  4. ANAFRANIL [Concomitant]
     Dates: start: 20050607
  5. STILNOX [Concomitant]
     Dates: start: 20050607

REACTIONS (9)
  - DELUSION [None]
  - DIARRHOEA [None]
  - DIZZINESS [None]
  - EXCITABILITY [None]
  - HEADACHE [None]
  - INSOMNIA [None]
  - MUSCLE CONTRACTIONS INVOLUNTARY [None]
  - NAUSEA [None]
  - WEIGHT DECREASED [None]
